FAERS Safety Report 7320012-8 (Version None)
Quarter: 2011Q1

REPORT INFORMATION
  Report Type: 
  Country: None (occurrence: None)
  Receive Date: 20110228
  Receipt Date: 20110201
  Transmission Date: 20110831
  Serious: No
  Sender: FDA-Public Use
  Company Number: US-B.I. PHARMACEUTICALS,INC./RIDGEFIELD-2011-BP-03305BP

PATIENT
  Sex: Male

DRUGS (4)
  1. KLONOPIN [Concomitant]
     Indication: MYOCLONUS
     Route: 048
  2. LEXAPRO [Concomitant]
     Indication: MYOCLONUS
     Route: 048
  3. MIRAPEX [Suspect]
     Indication: MYOCLONUS
     Dosage: 0.75 MG
     Route: 048
     Dates: start: 20110131
  4. DEPAKOTE [Concomitant]
     Indication: MYOCLONUS
     Route: 048

REACTIONS (1)
  - DRUG INEFFECTIVE [None]
